FAERS Safety Report 5829874-4 (Version None)
Quarter: 2008Q3

REPORT INFORMATION
  Report Type: 
  Country: None (occurrence: None)
  Receive Date: 20080723
  Receipt Date: 20080709
  Transmission Date: 20090109
  Serious: Yes (Hospitalization, Other)
  Sender: FDA-Public Use
  Company Number: THYM-11391

PATIENT
  Age: 40 Year
  Sex: Male
  Weight: 109 kg

DRUGS (3)
  1. THYMOGLOBULIN [Suspect]
     Indication: HEART TRANSPLANT REJECTION
     Dosage: INTRAVENOUS
     Route: 042
     Dates: start: 20061001, end: 20061001
  2. THYMOGLOBULIN [Suspect]
     Indication: HEART TRANSPLANT REJECTION
     Dosage: INTRAVENOUS
     Route: 042
     Dates: start: 20061001, end: 20061001
  3. PREMEDICATION (PREMEDICATION) [Concomitant]

REACTIONS (4)
  - CELL DEATH [None]
  - CYTOKINE RELEASE SYNDROME [None]
  - FLUID OVERLOAD [None]
  - PULMONARY OEDEMA [None]
